FAERS Safety Report 8170417-0 (Version None)
Quarter: 2012Q1

REPORT INFORMATION
  Report Type: 
  Country: None (occurrence: None)
  Receive Date: 20120228
  Receipt Date: 20120222
  Transmission Date: 20120608
  Serious: Yes (Other)
  Sender: FDA-Public Use
  Company Number: BR-PFIZER INC-2012046953

PATIENT
  Age: 61 Year
  Sex: Male

DRUGS (1)
  1. XALATAN [Suspect]
     Indication: INTRAOCULAR PRESSURE TEST
     Dosage: 3 UG (TWO DROPS), 1X/DAY
     Route: 047
     Dates: start: 20081018, end: 20120222

REACTIONS (1)
  - INTRAOCULAR PRESSURE INCREASED [None]
